FAERS Safety Report 20482240 (Version 1)
Quarter: 2022Q1

REPORT INFORMATION
  Report Type: Spontaneous
  Country: US (occurrence: US)
  Receive Date: 20220216
  Receipt Date: 20220216
  Transmission Date: 20220423
  Serious: No
  Sender: FDA-Public Use
  Company Number: US-009507513-2202USA004018

PATIENT
  Age: 56 Year
  Sex: Female

DRUGS (2)
  1. KEYTRUDA [Suspect]
     Active Substance: PEMBROLIZUMAB
     Indication: Uterine cancer
     Dosage: UNK
     Route: 042
     Dates: start: 2021
  2. LENVATINIB MESYLATE [Suspect]
     Active Substance: LENVATINIB MESYLATE
     Indication: Uterine cancer
     Dosage: 20 MG
     Route: 048
     Dates: start: 2021

REACTIONS (19)
  - Blood pressure diastolic increased [Not Recovered/Not Resolved]
  - Blood pressure abnormal [Not Recovered/Not Resolved]
  - Feeling cold [Not Recovered/Not Resolved]
  - Skin discolouration [Not Recovered/Not Resolved]
  - Fall [Not Recovered/Not Resolved]
  - Muscle strain [Unknown]
  - Decreased appetite [Not Recovered/Not Resolved]
  - Weight decreased [Not Recovered/Not Resolved]
  - Blood thyroid stimulating hormone increased [Not Recovered/Not Resolved]
  - Arthralgia [Not Recovered/Not Resolved]
  - Fatigue [Recovered/Resolved]
  - Constipation [Recovered/Resolved]
  - Joint swelling [Not Recovered/Not Resolved]
  - Erythema [Unknown]
  - Peripheral swelling [Unknown]
  - Flushing [Unknown]
  - Diarrhoea [Not Recovered/Not Resolved]
  - Pain in extremity [Not Recovered/Not Resolved]
  - Product dose omission issue [Unknown]

NARRATIVE: CASE EVENT DATE: 20210101
